FAERS Safety Report 5447556-8 (Version None)
Quarter: 2007Q3

REPORT INFORMATION
  Report Type: 
  Country: None (occurrence: None)
  Receive Date: 20070905
  Receipt Date: 20070905
  Transmission Date: 20080115
  Serious: Yes (Other)
  Sender: FDA-Public Use
  Company Number: None

PATIENT
  Age: 32 Year
  Sex: Female
  Weight: 65.7716 kg

DRUGS (3)
  1. MIRENA [Suspect]
     Indication: CONTRACEPTION
     Dosage: 20MCG DAILY VAG
     Route: 067
     Dates: start: 20070507, end: 20070901
  2. MIRENA [Suspect]
     Indication: MENORRHAGIA
     Dosage: 20MCG DAILY VAG
     Route: 067
     Dates: start: 20070507, end: 20070901
  3. ZOLOFT [Concomitant]

REACTIONS (11)
  - ABDOMINAL DISTENSION [None]
  - ACNE [None]
  - AMNESIA [None]
  - ARTHRALGIA [None]
  - BACK PAIN [None]
  - BREAST TENDERNESS [None]
  - DISTURBANCE IN ATTENTION [None]
  - FEELING ABNORMAL [None]
  - MUSCLE SPASMS [None]
  - VAGINAL HAEMORRHAGE [None]
  - WEIGHT INCREASED [None]
